FAERS Safety Report 25869692 (Version 1)
Quarter: 2025Q4

REPORT INFORMATION
  Report Type: Spontaneous
  Country: US (occurrence: US)
  Receive Date: 20251001
  Receipt Date: 20251001
  Transmission Date: 20260118
  Serious: No
  Sender: GALDERMA
  Company Number: US-GALDERMA-US2025017258

PATIENT

DRUGS (1)
  1. NEMLUVIO [Suspect]
     Active Substance: NEMOLIZUMAB-ILTO
     Indication: Neurodermatitis
     Route: 058

REACTIONS (4)
  - Rash papular [Unknown]
  - Headache [Unknown]
  - Rash [Not Recovered/Not Resolved]
  - Product dose omission issue [Recovered/Resolved]
